FAERS Safety Report 10150430 (Version 1)
Quarter: 2014Q2

REPORT INFORMATION
  Report Type: Spontaneous
  Country: SE (occurrence: SE)
  Receive Date: 20140502
  Receipt Date: 20140502
  Transmission Date: 20141212
  Serious: Yes (Hospitalization, Other)
  Sender: FDA-Public Use
  Company Number: SE-ASTRAZENECA-2014SE28586

PATIENT
  Age: 23 Year
  Sex: Female

DRUGS (22)
  1. SEROQUEL [Suspect]
     Route: 048
  2. SEROQUEL [Suspect]
     Dosage: TEVA
     Route: 065
  3. OMEPRAZOLE [Suspect]
     Route: 048
  4. STESOLID [Suspect]
     Route: 065
  5. ZYPREXA [Suspect]
     Route: 065
  6. CISORDINOL [Suspect]
     Route: 065
  7. LITHIONIT [Suspect]
     Route: 065
  8. OXASCAND [Suspect]
     Route: 065
  9. FLUOXETINE [Suspect]
     Route: 065
  10. HEMINEVRIN [Suspect]
     Route: 065
  11. AKINETON [Suspect]
     Route: 065
  12. THERALEN [Suspect]
     Route: 065
  13. IMOVANE [Suspect]
     Route: 065
  14. PROPAVAN [Suspect]
     Route: 065
  15. SOBRIL [Suspect]
     Route: 065
  16. ERGENYL [Suspect]
     Route: 065
  17. INVEGA [Suspect]
     Route: 065
  18. NOZINAN [Suspect]
     Route: 065
  19. PARGITAN [Suspect]
     Route: 065
  20. ATARAX [Suspect]
     Route: 065
  21. CETIRIZINE [Suspect]
     Route: 065
  22. TOPIRAMATE [Suspect]
     Route: 065

REACTIONS (22)
  - Ovarian germ cell teratoma stage II [Unknown]
  - Muscular weakness [Unknown]
  - Agitation [Unknown]
  - Aggression [Unknown]
  - Hyperhidrosis [Unknown]
  - Abdominal pain [Unknown]
  - Dysuria [Unknown]
  - Swelling [Unknown]
  - Breast enlargement [Unknown]
  - Genital neoplasm malignant female [Not Recovered/Not Resolved]
  - Weight increased [Unknown]
  - Tremor [Unknown]
  - Dyspnoea [Unknown]
  - Blood prolactin increased [Unknown]
  - Palpitations [Unknown]
  - Dyskinesia [Unknown]
  - Muscle spasms [Unknown]
  - Fatigue [Unknown]
  - Amenorrhoea [Not Recovered/Not Resolved]
  - Galactorrhoea [Not Recovered/Not Resolved]
  - Anger [Unknown]
  - Oedema [Unknown]
